FAERS Safety Report 18554560 (Version 2)
Quarter: 2020Q4

REPORT INFORMATION
  Report Type: Spontaneous
  Country: DE (occurrence: DE)
  Receive Date: 20201127
  Receipt Date: 20201216
  Transmission Date: 20210114
  Serious: Yes (Other)
  Sender: FDA-Public Use
  Company Number: DE-GLENMARK PHARMACEUTICALS-2020GMK050581

PATIENT

DRUGS (3)
  1. LEVOCETIRIZIN GLENMARK 5MG FILMTABLETTEN [Suspect]
     Active Substance: LEVOCETIRIZINE DIHYDROCHLORIDE
     Indication: URTICARIA
     Dosage: 10 MILLIGRAM, BID (TWO FILM COATED TABLETS IN THE MORNING AND TWO FILM COATED TABLETS IN THE EVENING
     Route: 065
  2. SALBUTAMOL [Concomitant]
     Active Substance: ALBUTEROL
     Indication: PRODUCT USED FOR UNKNOWN INDICATION
     Dosage: UNK, PRN (IF REQUIRED, VERY RARELY)
     Route: 065
  3. METAMIZOLE [Concomitant]
     Active Substance: METAMIZOLE
     Indication: PRODUCT USED FOR UNKNOWN INDICATION
     Dosage: UNK, PRN (IF REQUIRED, VERY RARELY)
     Route: 065

REACTIONS (2)
  - Coeliac disease [Unknown]
  - Product use issue [Unknown]
